FAERS Safety Report 14263333 (Version 2)
Quarter: 2018Q1

REPORT INFORMATION
  Report Type: Spontaneous
  Country: GB (occurrence: GB)
  Receive Date: 20171208
  Receipt Date: 20180111
  Transmission Date: 20180508
  Serious: Yes (Other)
  Sender: FDA-Public Use
  Company Number: GB-009507513-1712GBR003128

PATIENT
  Sex: Female

DRUGS (2)
  1. JANUVIA [Suspect]
     Active Substance: SITAGLIPTIN PHOSPHATE
     Dosage: A TABLET FROM EACH PACK (TWO 50MG TABLETS/DAY)
     Route: 048
  2. XELEVIA [Suspect]
     Active Substance: SITAGLIPTIN PHOSPHATE
     Dosage: A TABLET FROM EACH PACK (TWO 50MG TABLETS/DAY)
     Route: 048

REACTIONS (3)
  - Product label confusion [Unknown]
  - Suspected counterfeit product [Unknown]
  - Overdose [Unknown]

NARRATIVE: CASE EVENT DATE: 201711
